FAERS Safety Report 5702730-8 (Version None)
Quarter: 2008Q2

REPORT INFORMATION
  Report Type: 
  Country: None (occurrence: None)
  Receive Date: 20080410
  Receipt Date: 20080410
  Transmission Date: 20081010
  Serious: Yes (Other)
  Sender: FDA-Public Use
  Company Number: None

PATIENT
  Age: 55 Year
  Sex: Male
  Weight: 95.2554 kg

DRUGS (1)
  1. SIMVASTATIN 20 MG ZYDUS PHARMA [Suspect]
     Indication: CORONARY ARTERY DISEASE
     Dosage: 20 MG ONCE A DAY PO
     Route: 048
     Dates: start: 19980720, end: 20080220

REACTIONS (3)
  - COLITIS COLLAGENOUS [None]
  - DIARRHOEA [None]
  - MIDDLE INSOMNIA [None]
